FAERS Safety Report 22072533 (Version 1)
Quarter: 2023Q1

REPORT INFORMATION
  Report Type: Spontaneous
  Country: CA (occurrence: CA)
  Receive Date: 20230308
  Receipt Date: 20230308
  Transmission Date: 20230418
  Serious: Yes (Hospitalization, Other)
  Sender: FDA-Public Use
  Company Number: CA-SAMSUNG BIOEPIS-SB-2023-05814

PATIENT
  Age: 53 Year
  Sex: Female

DRUGS (2)
  1. INFLIXIMAB [Suspect]
     Active Substance: INFLIXIMAB
     Indication: Product used for unknown indication
     Route: 042
  2. COMIRNATY [Suspect]
     Active Substance: TOZINAMERAN
     Indication: COVID-19 immunisation
     Dosage: UNKNOWN, PURPLE CAP VIAL (12 PLUS YEARS) AFTER DILUTION CONTAINS 6 DOSES OF 0.3 ML, SUSPENSION INTRA
     Route: 065

REACTIONS (5)
  - Pericarditis [Unknown]
  - Myocarditis [Unknown]
  - Menstrual disorder [Unknown]
  - Menopause [Unknown]
  - Lymphadenopathy [Unknown]
